FAERS Safety Report 15663071 (Version 1)
Quarter: 2018Q4

REPORT INFORMATION
  Report Type: Spontaneous
  Country: US (occurrence: US)
  Receive Date: 20181127
  Receipt Date: 20181127
  Transmission Date: 20190205
  Serious: Yes (Hospitalization, Other)
  Sender: FDA-Public Use
  Company Number: US-SAKK-2018SA322528AA

PATIENT
  Age: 48 Year

DRUGS (32)
  1. LOPERAMIDE [Concomitant]
     Active Substance: LOPERAMIDE
     Dosage: 2 MG, QD
     Route: 048
     Dates: start: 20180927
  2. NORMAL SALINE [Concomitant]
     Active Substance: SODIUM CHLORIDE
     Dosage: 9 %, UNK
     Route: 042
     Dates: start: 20171207
  3. EPINEPHRINE. [Concomitant]
     Active Substance: EPINEPHRINE
     Indication: ANAPHYLACTIC REACTION
     Dosage: 0.3 MG, UNK
     Route: 030
     Dates: start: 20171207
  4. SYNTHROID [Concomitant]
     Active Substance: LEVOTHYROXINE SODIUM
     Dosage: 75 UG, QD
     Route: 065
  5. PREDNISONE. [Concomitant]
     Active Substance: PREDNISONE
     Dosage: 5 MG, QD
     Route: 048
  6. DIPHENHYDRAMINE. [Concomitant]
     Active Substance: DIPHENHYDRAMINE
     Indication: ANAPHYLACTIC REACTION
     Dosage: 50 MG, PRN
     Route: 042
     Dates: start: 20171207
  7. CLINDAMYCIN. [Concomitant]
     Active Substance: CLINDAMYCIN
     Dosage: 300 MG, TID
     Route: 048
     Dates: start: 20181023
  8. SODIUM CHLORIDE. [Concomitant]
     Active Substance: SODIUM CHLORIDE
     Dosage: 0.9 %, UNK
     Route: 042
     Dates: start: 20171207
  9. GABAPENTIN. [Concomitant]
     Active Substance: GABAPENTIN
     Dosage: 300 MG, BID
     Route: 048
     Dates: start: 20170302
  10. PROGRAF [Concomitant]
     Active Substance: TACROLIMUS\TACROLIMUS ANHYDROUS
     Dosage: 1 MG, BID
     Route: 048
     Dates: start: 20170216
  11. PARICALCITOL. [Concomitant]
     Active Substance: PARICALCITOL
     Dosage: 1 UG, QD
     Route: 048
     Dates: start: 20161031
  12. HEPARIN [Concomitant]
     Active Substance: HEPARIN SODIUM
     Indication: ANAPHYLACTIC REACTION
     Dosage: 100 IU, UNK
     Route: 042
     Dates: start: 20171207
  13. FENOFIBRATE. [Concomitant]
     Active Substance: FENOFIBRATE
     Dosage: 54 MG, QD
     Route: 048
     Dates: start: 20151202
  14. LORATADINE. [Concomitant]
     Active Substance: LORATADINE
     Dosage: 10 MG, QD
     Route: 048
     Dates: start: 20151202
  15. FABRAZYME [Suspect]
     Active Substance: AGALSIDASE BETA
     Indication: FABRY^S DISEASE
     Dosage: 66 MG, QOW
     Route: 041
     Dates: start: 20100401
  16. MUPIROCIN. [Concomitant]
     Active Substance: MUPIROCIN
     Dosage: 1 DF
     Route: 061
     Dates: start: 20181023
  17. METOPROLOL TARTRATE. [Concomitant]
     Active Substance: METOPROLOL TARTRATE
     Dosage: 0.5 MG, BID
     Route: 041
     Dates: start: 20181010
  18. FUROSEMIDE. [Concomitant]
     Active Substance: FUROSEMIDE
     Dosage: 20 MG, QD
     Route: 048
     Dates: start: 20170513
  19. VENLAFAXINE [Concomitant]
     Active Substance: VENLAFAXINE HYDROCHLORIDE
     Dosage: 75 MG, QD
     Route: 048
     Dates: start: 20181007
  20. TESTOSTERONE. [Concomitant]
     Active Substance: TESTOSTERONE
     Dosage: 0.75 MG, QOW
     Route: 065
     Dates: start: 20170525
  21. PSYLLIUM FIBRE [Concomitant]
     Dosage: 10.52 MG, BID
     Route: 048
     Dates: start: 20170413
  22. PROGRAF [Concomitant]
     Active Substance: TACROLIMUS\TACROLIMUS ANHYDROUS
     Dosage: 0.5 MG, BID
     Route: 048
     Dates: start: 20170216
  23. DHEA [Concomitant]
     Active Substance: PRASTERONE
     Dosage: 25 MG, BID
     Route: 048
     Dates: start: 20170413
  24. DIPHENHYDRAMINE. [Concomitant]
     Active Substance: DIPHENHYDRAMINE
     Dosage: 50 MG, PRN
     Route: 048
     Dates: start: 20171207
  25. CYANOCOBALAMIN. [Concomitant]
     Active Substance: CYANOCOBALAMIN
     Dosage: 1 ML, QW
     Route: 030
     Dates: start: 20170525
  26. ASPIRIN [ACETYLSALICYLIC ACID] [Concomitant]
     Active Substance: ASPIRIN
     Dosage: 325 MG, QD
     Route: 048
     Dates: start: 20170413
  27. MELATONIN [Concomitant]
     Active Substance: MELATONIN
     Dosage: 1 DF, QD
     Route: 048
     Dates: start: 20170413
  28. LMX [LIDOCAINE] [Concomitant]
     Dosage: 4 %, UNK
     Route: 061
     Dates: start: 20100312
  29. LIDOCAIN [LIDOCAINE] [Concomitant]
     Indication: PREMEDICATION
     Dosage: 4 %, UNK
     Route: 061
     Dates: start: 20171207
  30. FLUTICASONE. [Concomitant]
     Active Substance: FLUTICASONE
     Dosage: 1 DF, UNK
     Route: 045
     Dates: start: 20171028
  31. VITAMIN D3 [Concomitant]
     Active Substance: CHOLECALCIFEROL
     Dosage: 1000 IU, QD
     Route: 048
     Dates: start: 20170413
  32. ARAVA [Concomitant]
     Active Substance: LEFLUNOMIDE
     Dosage: 40 MG, QD
     Route: 048
     Dates: start: 20161031

REACTIONS (5)
  - Cerebrovascular accident [Not Recovered/Not Resolved]
  - Cerebral haemorrhage [Not Recovered/Not Resolved]
  - Renal disorder [Not Recovered/Not Resolved]
  - Cardiac disorder [Not Recovered/Not Resolved]
  - Neurological symptom [Not Recovered/Not Resolved]
